FAERS Safety Report 16971740 (Version 1)
Quarter: 2019Q4

REPORT INFORMATION
  Report Type: Spontaneous
  Country: US (occurrence: US)
  Receive Date: 20190912
  Receipt Date: 20190912
  Transmission Date: 20200122
  Serious: Yes (Other)
  Sender: FDA-Public Use
  Company Number: None

PATIENT
  Age: 28 Year
  Sex: Female
  Weight: 47.63 kg

DRUGS (5)
  1. GABAPENTIN. [Concomitant]
     Active Substance: GABAPENTIN
  2. CLONIDINE. [Concomitant]
     Active Substance: CLONIDINE
  3. BUPRENORPHINE/NALOXONE 8-2MG [Suspect]
     Active Substance: BUPRENORPHINE\NALOXONE
     Indication: DRUG DEPENDENCE
     Dosage: ?          OTHER DOSE:8-2MG FILM;?
     Route: 060
     Dates: start: 20190326, end: 20190526
  4. BUPRENORPHINE/NALOXONE 8-2MG [Suspect]
     Active Substance: BUPRENORPHINE\NALOXONE
     Dosage: ?          OTHER DOSE:8-2MG FILM;?
     Route: 060
     Dates: start: 20190702, end: 20190802
  5. CLONAZEPAM. [Concomitant]
     Active Substance: CLONAZEPAM

REACTIONS (6)
  - Mental disorder [None]
  - Aggression [None]
  - Anger [None]
  - Affect lability [None]
  - Insomnia [None]
  - Condition aggravated [None]

NARRATIVE: CASE EVENT DATE: 20190730
